FAERS Safety Report 5901974-X (Version None)
Quarter: 2008Q3

REPORT INFORMATION
  Report Type: 
  Country: None (occurrence: None)
  Receive Date: 20080924
  Receipt Date: 20080916
  Transmission Date: 20090109
  Serious: Yes (Hospitalization)
  Sender: FDA-Public Use
  Company Number: 2008BI016865

PATIENT
  Age: 50 Year
  Sex: Female

DRUGS (1)
  1. TYSABRI [Suspect]
     Indication: RELAPSING-REMITTING MULTIPLE SCLEROSIS
     Dosage: 300 MG;QM;IV
     Route: 042
     Dates: start: 20080101

REACTIONS (5)
  - CANDIDIASIS [None]
  - COMMUNITY ACQUIRED INFECTION [None]
  - FURUNCLE [None]
  - HORDEOLUM [None]
  - STAPHYLOCOCCAL INFECTION [None]
